FAERS Safety Report 9957300 (Version 1)
Quarter: 2014Q1

REPORT INFORMATION
  Report Type: Report from Study
  Country: US (occurrence: US)
  Receive Date: 20140304
  Receipt Date: 20140304
  Transmission Date: 20141002
  Serious: No
  Sender: FDA-Public Use
  Company Number: US-ABBVIE-13P-163-1096788-00

PATIENT
  Age: 63 Year
  Sex: Male

DRUGS (3)
  1. HUMIRA [Suspect]
     Indication: TENDONITIS
     Dates: start: 201301
  2. AMLODIPINE VESYLAT [Concomitant]
     Indication: BLOOD PRESSURE
  3. HYDROCHOLOTHIAZIDE [Concomitant]
     Indication: BLOOD PRESSURE

REACTIONS (3)
  - Liquid product physical issue [Unknown]
  - Poor quality drug administered [Unknown]
  - Off label use [Unknown]
